FAERS Safety Report 9862090 (Version 1)
Quarter: 2014Q1

REPORT INFORMATION
  Report Type: Spontaneous
  Country: FR (occurrence: FR)
  Receive Date: 20140203
  Receipt Date: 20140203
  Transmission Date: 20141002
  Serious: Yes (Other)
  Sender: FDA-Public Use
  Company Number: FR-JNJFOC-20140114033

PATIENT
  Sex: Male

DRUGS (3)
  1. XEPLION [Suspect]
     Indication: SCHIZOPHRENIA
     Route: 030
  2. XEPLION [Suspect]
     Indication: SCHIZOPHRENIA
     Route: 030
     Dates: start: 201309
  3. SERESTA [Concomitant]
     Indication: PRODUCT USED FOR UNKNOWN INDICATION
     Route: 065

REACTIONS (1)
  - Thrombocytopenia [Unknown]
